FAERS Safety Report 19668215 (Version 1)
Quarter: 2021Q3

REPORT INFORMATION
  Report Type: Other
  Country: US (occurrence: US)
  Receive Date: 20210806
  Receipt Date: 20210806
  Transmission Date: 20211014
  Serious: Yes (Death, Other)
  Sender: FDA-Public Use
  Company Number: US-APOTEX-2021AP029687

PATIENT
  Age: 69 Year
  Sex: Male

DRUGS (2)
  1. RANITIDINE TABLETS [Suspect]
     Active Substance: RANITIDINE HYDROCHLORIDE
     Indication: GASTRIC PH DECREASED
     Dosage: OCCASIONAL
     Route: 065
     Dates: start: 200001, end: 201202
  2. ZANTAC [Suspect]
     Active Substance: RANITIDINE HYDROCHLORIDE
     Indication: GASTRIC PH DECREASED
     Dosage: OCCASIONAL
     Route: 065
     Dates: start: 200001, end: 201202

REACTIONS (3)
  - Renal cancer [Fatal]
  - Brain neoplasm malignant [Fatal]
  - Lung neoplasm malignant [Fatal]

NARRATIVE: CASE EVENT DATE: 20111026
